FAERS Safety Report 13720106 (Version 1)
Quarter: 2017Q3

REPORT INFORMATION
  Report Type: Spontaneous
  Country: FR (occurrence: FR)
  Receive Date: 20170706
  Receipt Date: 20170706
  Transmission Date: 20171127
  Serious: Yes (Hospitalization)
  Sender: FDA-Public Use
  Company Number: FR-BAXTER-2017BAX026574

PATIENT
  Age: 33 Year
  Sex: Male

DRUGS (16)
  1. ISENTRESS [Concomitant]
     Active Substance: RALTEGRAVIR POTASSIUM
     Indication: HIV INFECTION
     Route: 065
  2. ONDANSETRON ACCORD [Suspect]
     Active Substance: ONDANSETRON
     Indication: HODGKIN^S DISEASE
     Route: 042
     Dates: start: 20170513, end: 20170515
  3. PREDNISONE. [Suspect]
     Active Substance: PREDNISONE
     Indication: HODGKIN^S DISEASE
     Dosage: BEACOPP PROTOCOL FROM 13 TO 16MAY2017
     Route: 065
  4. SPECIAFOLDINE [Suspect]
     Active Substance: FOLIC ACID
     Indication: HIV TEST POSITIVE
     Route: 048
     Dates: start: 20170516
  5. VINCRISTINE [Suspect]
     Active Substance: VINCRISTINE
     Indication: HODGKIN^S DISEASE
     Dosage: BEACOPP PROTOCOL FROM 13 TO 16MAY2017
     Route: 065
  6. AUGMENTIN [Suspect]
     Active Substance: AMOXICILLIN\CLAVULANATE POTASSIUM
     Indication: HIV TEST POSITIVE
     Dosage: 1G/125 MG POWDER FOR ORAL SOLUTION IN SACHET
     Route: 048
     Dates: start: 20170516, end: 20170525
  7. ZELITREX [Suspect]
     Active Substance: VALACYCLOVIR HYDROCHLORIDE
     Indication: HIV TEST POSITIVE
     Route: 048
     Dates: start: 20170516
  8. MESNA EG [Suspect]
     Active Substance: MESNA
     Indication: HODGKIN^S DISEASE
     Dosage: IV INFUSION
     Route: 042
     Dates: start: 20170513, end: 20170515
  9. BACTRIM [Suspect]
     Active Substance: SULFAMETHOXAZOLE\TRIMETHOPRIM
     Indication: HIV TEST POSITIVE
     Route: 048
     Dates: start: 20170516
  10. ENDOXAN 1000 MG, POUDRE POUR SOLUTION INJECTABLE [Suspect]
     Active Substance: CYCLOPHOSPHAMIDE
     Indication: HODGKIN^S DISEASE
     Dosage: IV INFUSION (OVER 2 HOURS)
     Route: 042
     Dates: start: 20170514, end: 20170514
  11. METHYLPREDNISOLONE. [Suspect]
     Active Substance: METHYLPREDNISOLONE
     Indication: HODGKIN^S DISEASE
     Dosage: UNIT DOSE: ALSO REPORTED AS 60 MG/M2, FIRST CYCLE
     Route: 042
     Dates: start: 20170513, end: 20170515
  12. CAELYX [Suspect]
     Active Substance: DOXORUBICIN HYDROCHLORIDE
     Indication: HODGKIN^S DISEASE
     Dosage: IV INFUSION (SHORT INFUSION)
     Route: 042
     Dates: start: 20170513, end: 20170513
  13. ETOPOSIDE. [Suspect]
     Active Substance: ETOPOSIDE
     Indication: HODGKIN^S DISEASE
     Dosage: IV INFUSION OVER 2 HOURS
     Route: 042
     Dates: start: 20170514, end: 20170515
  14. NATULAN [Suspect]
     Active Substance: PROCARBAZINE HYDROCHLORIDE
     Indication: HODGKIN^S DISEASE
     Dosage: SOLUTION FOR INJECTION 250MG/ 5ML
     Route: 048
     Dates: start: 20170513, end: 20170515
  15. BLEOMYCIN [Suspect]
     Active Substance: BLEOMYCIN SULFATE
     Indication: HODGKIN^S DISEASE
     Dosage: BEACOPP PROTOCOL FROM 13 TO 16MAY2017
     Route: 065
  16. TRUVADA [Concomitant]
     Active Substance: EMTRICITABINE\TENOFOVIR DISOPROXIL FUMARATE
     Indication: HIV INFECTION
     Route: 065

REACTIONS (1)
  - Posterior reversible encephalopathy syndrome [Recovered/Resolved]

NARRATIVE: CASE EVENT DATE: 20170517
